FAERS Safety Report 5567829-8 (Version None)
Quarter: 2007Q4

REPORT INFORMATION
  Report Type: 
  Country: None (occurrence: None)
  Receive Date: 20071220
  Receipt Date: 20071217
  Transmission Date: 20080405
  Serious: Yes (Other)
  Sender: FDA-Public Use
  Company Number: PHEH2007US11384

PATIENT
  Age: 92 Year
  Sex: Female
  Weight: 51.927 kg

DRUGS (1)
  1. TEKTURNA [Suspect]
     Indication: HYPERTENSION
     Dosage: 150 MG, QD
     Route: 048
     Dates: start: 20070703, end: 20070816

REACTIONS (5)
  - COUGH [None]
  - HALLUCINATION [None]
  - INSOMNIA [None]
  - PERSONALITY CHANGE [None]
  - PRURITUS [None]
